FAERS Safety Report 5009632-3 (Version None)
Quarter: 2006Q2

REPORT INFORMATION
  Report Type: 
  Country: None (occurrence: None)
  Receive Date: 20060524
  Receipt Date: 20060518
  Transmission Date: 20061013
  Serious: Yes (Hospitalization)
  Sender: FDA-Public Use
  Company Number: US-GLAXOSMITHKLINE-A0606218A

PATIENT
  Age: 68 Year
  Sex: Female

DRUGS (6)
  1. COREG [Suspect]
     Dosage: 25MG TWICE PER DAY
     Route: 048
     Dates: start: 20000801
  2. LANOXIN [Suspect]
     Indication: ATRIAL FIBRILLATION
     Dosage: .0625MG PER DAY
     Route: 048
     Dates: start: 20000101
  3. LISINOPRIL [Concomitant]
  4. SPIRONOLACTONE [Concomitant]
  5. WARFARIN SODIUM [Concomitant]
  6. FOSAMAX [Concomitant]

REACTIONS (7)
  - ASTHENIA [None]
  - BLOOD PRESSURE DECREASED [None]
  - CARDIAC ARREST [None]
  - CYANOSIS [None]
  - DIZZINESS [None]
  - HEART RATE DECREASED [None]
  - MEDICATION ERROR [None]
